FAERS Safety Report 6127611-X (Version None)
Quarter: 2009Q1

REPORT INFORMATION
  Report Type: 
  Country: None (occurrence: None)
  Receive Date: 20090319
  Receipt Date: 20090319
  Transmission Date: 20090719
  Serious: Yes (Hospitalization)
  Sender: FDA-Public Use
  Company Number: None

PATIENT
  Sex: Male
  Weight: 86 kg

DRUGS (3)
  1. CYTARABINE [Suspect]
     Dosage: 1470 MG
     Dates: end: 20090312
  2. DAUNORUBICIN HCL [Suspect]
     Dosage: 570 MG
     Dates: end: 20090307
  3. ETOPOSIDE [Suspect]
     Dosage: 630 MG
     Dates: end: 20090307

REACTIONS (11)
  - BRONCHOPULMONARY ASPERGILLOSIS [None]
  - CANDIDIASIS [None]
  - CONFUSIONAL STATE [None]
  - DISSEMINATED INTRAVASCULAR COAGULATION [None]
  - HEADACHE [None]
  - HYPERTENSION [None]
  - HYPOAESTHESIA FACIAL [None]
  - MELAENA [None]
  - PULMONARY ALVEOLAR HAEMORRHAGE [None]
  - SPUTUM CULTURE POSITIVE [None]
  - TACHYCARDIA [None]
